FAERS Safety Report 8605185-9 (Version None)
Quarter: 2012Q3

REPORT INFORMATION
  Report Type: 
  Country: None (occurrence: None)
  Receive Date: 20120820
  Receipt Date: 20120809
  Transmission Date: 20120928
  Serious: Yes (Hospitalization, Other)
  Sender: FDA-Public Use
  Company Number: CN-ASTRAZENECA-2012SE58121

PATIENT
  Age: 26229 Day
  Sex: Male
  Weight: 70 kg

DRUGS (3)
  1. PULMICORT [Suspect]
     Indication: ASTHMA
     Route: 055
     Dates: start: 20100210, end: 20100210
  2. IPRATROPIUM BROMIDE [Concomitant]
     Indication: MUSCLE SPASMS
     Route: 055
     Dates: start: 20100210, end: 20100210
  3. SODIUM CHLORIDE [Suspect]
     Route: 065
     Dates: start: 20100210, end: 20100210

REACTIONS (6)
  - TACHYCARDIA [None]
  - RASH [None]
  - ERYTHEMA [None]
  - CYANOSIS [None]
  - DYSPNOEA [None]
  - CHEST DISCOMFORT [None]
